FAERS Safety Report 7914417-1 (Version None)
Quarter: 2011Q4

REPORT INFORMATION
  Report Type: 
  Country: None (occurrence: None)
  Receive Date: 20111115
  Receipt Date: 20111111
  Transmission Date: 20120403
  Serious: No
  Sender: FDA-Public Use
  Company Number: US-PFIZER INC-2011277352

PATIENT
  Sex: Female
  Weight: 58.5 kg

DRUGS (1)
  1. MEDROXYPROGESTERONE ACETATE [Suspect]
     Indication: HORMONE REPLACEMENT THERAPY
     Dosage: 2.5 MG, DAILY
     Route: 048
     Dates: end: 20111109

REACTIONS (2)
  - RASH [None]
  - DYSPNOEA [None]
